FAERS Safety Report 9328681 (Version 1)
Quarter: 2013Q2

REPORT INFORMATION
  Report Type: Spontaneous
  Country: US (occurrence: US)
  Receive Date: 20130604
  Receipt Date: 20130604
  Transmission Date: 20140414
  Serious: No
  Sender: FDA-Public Use
  Company Number: US-SANOFI-AVENTIS-2012SA063333

PATIENT
  Sex: Female

DRUGS (1)
  1. LANTUS [Suspect]
     Indication: TYPE 2 DIABETES MELLITUS
     Dosage: PRODUCT STARTED: MORE THAN 10 YEARS AGO?DOSE: 14 UNITS CAN VARY
     Route: 058
     Dates: end: 201208

REACTIONS (1)
  - Visual acuity reduced [Unknown]
